FAERS Safety Report 23769179 (Version 1)
Quarter: 2024Q2

REPORT INFORMATION
  Report Type: Spontaneous
  Country: FR (occurrence: FR)
  Receive Date: 20240422
  Receipt Date: 20240422
  Transmission Date: 20240716
  Serious: Yes (Hospitalization)
  Sender: FDA-Public Use
  Company Number: None

PATIENT
  Age: 66 Year
  Sex: Male
  Weight: 85 kg

DRUGS (19)
  1. PACLITAXEL [Suspect]
     Active Substance: PACLITAXEL
     Indication: Lung adenocarcinoma
     Dosage: 175 MILLIGRAM, QD (IN ONE IV INFUSION)
     Route: 042
     Dates: start: 20231226, end: 20231226
  2. PACLITAXEL [Suspect]
     Active Substance: PACLITAXEL
     Dosage: 78 MILLIGRAM, QD (IN ONE IV INFUSION)
     Route: 042
     Dates: start: 20240116, end: 20240116
  3. PACLITAXEL [Suspect]
     Active Substance: PACLITAXEL
     Dosage: 78 MILLIGRAM, QD (IN ONE IV INFUSION)
     Route: 042
     Dates: start: 20240130, end: 20240130
  4. PACLITAXEL [Suspect]
     Active Substance: PACLITAXEL
     Dosage: 78 MILLIGRAM, QD (IN ONE IV INFUSION)
     Route: 042
     Dates: start: 20240213, end: 20240213
  5. PACLITAXEL [Suspect]
     Active Substance: PACLITAXEL
     Dosage: 175 MILLIGRAM, QD (IN ONE IV INFUSION)
     Route: 042
     Dates: start: 20231219, end: 20231219
  6. PACLITAXEL [Suspect]
     Active Substance: PACLITAXEL
     Dosage: 78 MILLIGRAM, QD (IN ONE IV INFUSION)
     Route: 042
     Dates: start: 20240123, end: 20240123
  7. PACLITAXEL [Suspect]
     Active Substance: PACLITAXEL
     Dosage: 78 MILLIGRAM, QD (IN ONE IV INFUSION)
     Route: 042
     Dates: start: 20240220, end: 20240220
  8. PACLITAXEL [Suspect]
     Active Substance: PACLITAXEL
     Dosage: 78 MILLIGRAM, QD (IN ONE IV INFUSION)
     Route: 042
     Dates: start: 20240227, end: 20240227
  9. PACLITAXEL [Suspect]
     Active Substance: PACLITAXEL
     Dosage: 78 MILLIGRAM, QD (78 MG EN UNE PERFUSION IV)
     Route: 042
     Dates: start: 20240206, end: 20240206
  10. PACLITAXEL [Suspect]
     Active Substance: PACLITAXEL
     Dosage: 175 MILLIGRAM, QD (78 MG EN UNE PERFUSION IV)
     Route: 042
     Dates: start: 20231212, end: 20231212
  11. AMIODARONE [Suspect]
     Active Substance: AMIODARONE
     Indication: Atrial fibrillation
     Dosage: 200 MILLIGRAM, QD (200 MG IN THE MORNING)
     Route: 048
     Dates: start: 20240130, end: 20240318
  12. CARBOPLATIN [Suspect]
     Active Substance: CARBOPLATIN
     Indication: Lung adenocarcinoma
     Dosage: 540 MILLIGRAM, QD (IN ONE IV INFUSION)
     Route: 042
     Dates: start: 20231212, end: 20231212
  13. CARBOPLATIN [Suspect]
     Active Substance: CARBOPLATIN
     Dosage: 208 MILLIGRAM, QD (IN ONE IV INFUSION)
     Route: 042
     Dates: start: 20240130, end: 20240130
  14. CARBOPLATIN [Suspect]
     Active Substance: CARBOPLATIN
     Dosage: 218 MILLIGRAM, QD (IN ONE IV INFUSION)
     Route: 042
     Dates: start: 20240116, end: 20240116
  15. CARBOPLATIN [Suspect]
     Active Substance: CARBOPLATIN
     Dosage: 213 MILLIGRAM, QD (IN ONE IV INFUSION)
     Route: 042
     Dates: start: 20240220, end: 20240220
  16. CARBOPLATIN [Suspect]
     Active Substance: CARBOPLATIN
     Dosage: 213 MILLIGRAM, QD (IN ONE IV INFUSION)
     Route: 042
     Dates: start: 20240123, end: 20240123
  17. CARBOPLATIN [Suspect]
     Active Substance: CARBOPLATIN
     Dosage: 204 MILLIGRAM, QD (IN ONE IV INFUSION)
     Route: 042
     Dates: start: 20240206, end: 20240206
  18. CARBOPLATIN [Suspect]
     Active Substance: CARBOPLATIN
     Dosage: 208 MILLIGRAM, QD (IN ONE IV INFUSION)
     Route: 042
     Dates: start: 20240227, end: 20240227
  19. CARBOPLATIN [Suspect]
     Active Substance: CARBOPLATIN
     Dosage: 224 MILLIGRAM, QD (IN ONE IV INFUSION)
     Route: 042
     Dates: start: 20240213, end: 20240213

REACTIONS (1)
  - Interstitial lung disease [Not Recovered/Not Resolved]

NARRATIVE: CASE EVENT DATE: 20240312
